FAERS Safety Report 4377722-4 (Version None)
Quarter: 2004Q2

REPORT INFORMATION
  Report Type: 
  Country: None (occurrence: None)
  Receive Date: 20040608
  Receipt Date: 20040527
  Transmission Date: 20050107
  Serious: Yes (Hospitalization)
  Sender: FDA-Public Use
  Company Number: STA-AE-04-MTX-239

PATIENT
  Age: 75 Year
  Sex: Male

DRUGS (12)
  1. RHEUMATREX [Suspect]
     Indication: RHEUMATOID ARTHRITIS
     Dosage: 4 MG 1X PER 1 WK, ORAL
     Route: 048
     Dates: start: 20030214, end: 20030508
  2. RHEUMATREX [Suspect]
     Indication: RHEUMATOID ARTHRITIS
     Dosage: 6 MG 1X PER 1 WK, ORAL
     Route: 048
     Dates: start: 20030509, end: 20030612
  3. RHEUMATREX [Suspect]
     Indication: RHEUMATOID ARTHRITIS
     Dosage: 4 MG 1X PER 1 WK, ORAL
     Route: 048
     Dates: start: 20030613, end: 20030807
  4. RHEUMATREX [Suspect]
     Indication: RHEUMATOID ARTHRITIS
     Dosage: 6 MG 1X PER 1 WK, ORAL
     Route: 048
     Dates: start: 20030808, end: 20040109
  5. ETODOLAC [Suspect]
     Dosage: 400 MG 1X PER 1 DAY, ORAL
     Route: 048
     Dates: start: 20021213, end: 20040109
  6. PENICILLAMINE [Suspect]
     Dosage: 200 MG 1X PER 1 DAY, ORAL
     Route: 048
     Dates: start: 20030509, end: 20040109
  7. PREDNISOLONE [Concomitant]
  8. FOLIAMIN (FOLIC ACID) [Concomitant]
  9. ALFACALCIDOL (ALFACALCIDOL) [Concomitant]
  10. BENET (RISEDRONIC ACID) [Concomitant]
  11. SELBEX (TEPRENONE) [Concomitant]
  12. ADEFURONIC (DICLOFEANC SODIUM) [Concomitant]

REACTIONS (4)
  - APLASTIC ANAEMIA [None]
  - BACTERIAL INFECTION [None]
  - PANCYTOPENIA [None]
  - PULMONARY FIBROSIS [None]
